FAERS Safety Report 15947797 (Version 1)
Quarter: 2019Q1

REPORT INFORMATION
  Report Type: Spontaneous
  Country: BG (occurrence: BG)
  Receive Date: 20190212
  Receipt Date: 20190212
  Transmission Date: 20190417
  Serious: Yes (Life-Threatening, Hospitalization, Other)
  Sender: FDA-Public Use
  Company Number: BG-LUPIN PHARMACEUTICALS INC.-2019-00681

PATIENT
  Age: 70 Year
  Sex: Male

DRUGS (3)
  1. VALSARTAN. [Suspect]
     Active Substance: VALSARTAN
     Indication: HYPERTENSION
     Dosage: 160 MILLIGRAM, QD (0-0-1)
     Route: 065
     Dates: start: 20160401, end: 201810
  2. AMLODIPINE AND VALSARTAN [Suspect]
     Active Substance: AMLODIPINE\VALSARTAN
     Dosage: 01 DOSAGE FORM, QD (1-0-0)
     Route: 065
     Dates: start: 20121113, end: 201810
  3. AMLODIPINE AND VALSARTAN [Suspect]
     Active Substance: AMLODIPINE\VALSARTAN
     Indication: HYPERTENSION
     Dosage: 01 DOSAGE FORM, QD (1-0-0)
     Route: 065
     Dates: start: 2008

REACTIONS (5)
  - Metastases to lymph nodes [Unknown]
  - Discomfort [Unknown]
  - Hypertension [Unknown]
  - Skin haemorrhage [Unknown]
  - Malignant melanoma stage III [Unknown]

NARRATIVE: CASE EVENT DATE: 2015
